FAERS Safety Report 6523631-1 (Version None)
Quarter: 2009Q4

REPORT INFORMATION
  Report Type: 
  Country: None (occurrence: None)
  Receive Date: 20091231
  Receipt Date: 20091230
  Transmission Date: 20100525
  Serious: Yes (Life-Threatening, Hospitalization)
  Sender: FDA-Public Use
  Company Number: PHHO2009DE16208

PATIENT
  Sex: Male
  Weight: 91.5 kg

DRUGS (4)
  1. SANDIMMUNE [Suspect]
     Indication: RENAL TRANSPLANT
     Dosage: 100MG
     Route: 042
  2. MYFORTIC [Suspect]
     Indication: RENAL TRANSPLANT
     Dosage: UNK
     Dates: end: 20091221
  3. NO TREATMENT RECEIVED NOMED [Suspect]
     Dosage: UNK
  4. DECORTIN [Suspect]
     Indication: RENAL TRANSPLANT
     Dosage: 10MG
     Route: 042

REACTIONS (1)
  - ENDOCARDITIS [None]
